FAERS Safety Report 9185739 (Version 1)
Quarter: 2013Q1

REPORT INFORMATION
  Report Type: Spontaneous
  Country: US (occurrence: None)
  Receive Date: 20120628
  Receipt Date: 20120628
  Transmission Date: 20140127
  Serious: Yes (Other)
  Sender: FDA-Public Use
  Company Number: PHEH2011US02200

PATIENT
  Age: 56 Year
  Sex: Female

DRUGS (1)
  1. RECLAST [Suspect]
     Dosage: ONCE PER YEAR
     Route: 042

REACTIONS (9)
  - Influenza like illness [None]
  - Headache [None]
  - Nausea [None]
  - Vomiting [None]
  - Rash [None]
  - Arthralgia [None]
  - Muscle fatigue [None]
  - Diarrhoea [None]
  - Pyrexia [None]
